FAERS Safety Report 8780290 (Version 1)
Quarter: 2012Q4

REPORT INFORMATION
  Report Type: Spontaneous
  Country: US (occurrence: None)
  Receive Date: 20120905
  Receipt Date: 20120905
  Transmission Date: 20130627
  Serious: Yes (Life-Threatening, Hospitalization, Disabling, Other)
  Sender: FDA-Public Use
  Company Number: None

PATIENT
  Sex: Male

DRUGS (1)
  1. ISENTRESS [Suspect]

REACTIONS (4)
  - Myalgia [None]
  - Bone pain [None]
  - Neuropathy peripheral [None]
  - Burning sensation [None]
